FAERS Safety Report 5867086-9 (Version None)
Quarter: 2008Q3

REPORT INFORMATION
  Report Type: 
  Country: None (occurrence: None)
  Receive Date: 20080902
  Receipt Date: 20080901
  Transmission Date: 20090109
  Serious: Yes (Other)
  Sender: FDA-Public Use
  Company Number: B0535094A

PATIENT
  Age: 57 Year
  Sex: Male

DRUGS (6)
  1. REQUIP [Suspect]
     Indication: PARKINSON'S DISEASE
     Route: 048
  2. LEVODOPA [Suspect]
     Indication: DRUG USE FOR UNKNOWN INDICATION
     Route: 048
  3. OLANZAPINE [Concomitant]
     Route: 048
  4. PERGOLIDE MESYLATE [Concomitant]
     Route: 048
  5. PRAMIPEXOLE HYDROCHLORIDE [Concomitant]
     Route: 048
  6. QUETIAPINE FUMARATE [Concomitant]
     Route: 065

REACTIONS (7)
  - ABULIA [None]
  - ANHEDONIA [None]
  - DEPRESSION [None]
  - DOPAMINE DYSREGULATION SYNDROME [None]
  - ECONOMIC PROBLEM [None]
  - IMPULSIVE BEHAVIOUR [None]
  - PATHOLOGICAL GAMBLING [None]
